FAERS Safety Report 7776664-1 (Version None)
Quarter: 2011Q3

REPORT INFORMATION
  Report Type: 
  Country: None (occurrence: None)
  Receive Date: 20110926
  Receipt Date: 20100919
  Transmission Date: 20111222
  Serious: Yes (Death, Hospitalization, Other)
  Sender: FDA-Public Use
  Company Number: US-BAYER-201041713NA

PATIENT
  Age: 79 Year
  Sex: Male
  Weight: 69 kg

DRUGS (22)
  1. PLATELETS [Concomitant]
     Dosage: 6 UNITS
     Route: 042
     Dates: start: 19950305
  2. RED BLOOD CELLS [Concomitant]
     Dosage: UNK
     Dates: start: 19950307
  3. VANCOMYCIN [Concomitant]
     Dosage: 1 GM
     Route: 042
     Dates: start: 19950227
  4. ATIVAN [Concomitant]
     Dosage: UNK
     Route: 042
     Dates: start: 19950303
  5. FRESH FROZEN PLASMA [Concomitant]
     Dosage: 2 UNITS
     Dates: start: 19950227
  6. TRASYLOL [Suspect]
     Indication: CAROTID ENDARTERECTOMY
     Dosage: CONTINUED TO SURGICAL INTENSIVE CARE
     Route: 042
     Dates: start: 19950227, end: 19950228
  7. RED BLOOD CELLS [Concomitant]
     Dosage: UNK
     Dates: start: 19950227
  8. TRASYLOL [Suspect]
     Indication: CORONARY ARTERY BYPASS
  9. HEPARIN [Concomitant]
     Dosage: 5000 UNIT BOLUS THEN 1000 UNITS/HOUR
     Route: 042
     Dates: start: 19950223
  10. MORPHINE SULFATE [Concomitant]
     Dosage: 5 MG, UNK
     Route: 042
     Dates: start: 19950227
  11. NITRO-DUR [Concomitant]
     Dosage: 0.4 IN THE MORNING, LONG TERM
     Route: 061
  12. ATIVAN [Concomitant]
     Dosage: 5 MG
     Route: 048
     Dates: start: 19950227
  13. PLATELETS [Concomitant]
     Dosage: 18 UNITS
     Dates: start: 19950227
  14. DOPAMINE HCL [Concomitant]
     Dosage: 400 MICROGRAMS /MIN
     Route: 042
     Dates: start: 19950227
  15. ACETYLSALICYLIC ACID SRT [Concomitant]
     Dosage: 1 DAILY
     Route: 048
  16. DOBUTAMINE HCL [Concomitant]
     Dosage: 300 MICROGRAMS /MINUTE
     Route: 042
     Dates: start: 19950227, end: 19950307
  17. HEPARIN [Concomitant]
     Dosage: UNK
     Route: 042
     Dates: start: 19950227
  18. PROCARDIA [Concomitant]
     Dosage: 30 MG DAILY, LONG TERM
     Route: 048
  19. ATROVENT [Concomitant]
     Dosage: 2 PUFFS 4 TIMES A DAY, LONG TERM USE
  20. ISORDIL [Concomitant]
     Dosage: 10 MG THREE TIMES A DAY
     Route: 048
     Dates: start: 19950221
  21. NITROGLYCERIN [Concomitant]
     Dosage: 50 MICROGRAMS/MINUTE
     Route: 042
     Dates: start: 19950227
  22. VASOPRESSIN [Concomitant]
     Dosage: 20 UNITS
     Route: 042
     Dates: start: 19950227, end: 19950227

REACTIONS (12)
  - FEAR [None]
  - INJURY [None]
  - EMOTIONAL DISTRESS [None]
  - PAIN [None]
  - DEATH [None]
  - RENAL INJURY [None]
  - RENAL FAILURE [None]
  - RENAL IMPAIRMENT [None]
  - STRESS [None]
  - ANXIETY [None]
  - MULTI-ORGAN FAILURE [None]
  - UNEVALUABLE EVENT [None]
